FAERS Safety Report 10215593 (Version 2)
Quarter: 2014Q3

REPORT INFORMATION
  Report Type: Spontaneous
  Country: AU (occurrence: AU)
  Receive Date: 20140604
  Receipt Date: 20140908
  Transmission Date: 20150326
  Serious: Yes (Other)
  Sender: FDA-Public Use
  Company Number: AU-009507513-1406AUS000814

PATIENT
  Age: 38 Year
  Sex: Female

DRUGS (1)
  1. IMPLANON [Suspect]
     Active Substance: ETONOGESTREL
     Dosage: DOSE UNSPECIFIED
     Route: 059
     Dates: start: 201311, end: 201405

REACTIONS (3)
  - Pancreatic mass [Unknown]
  - Pancreatic cyst [Unknown]
  - Pancreatitis [Unknown]

NARRATIVE: CASE EVENT DATE: 20140526
